FAERS Safety Report 5733325-8 (Version None)
Quarter: 2008Q2

REPORT INFORMATION
  Report Type: 
  Country: None (occurrence: None)
  Receive Date: 20080507
  Receipt Date: 20080501
  Transmission Date: 20081010
  Serious: Yes (Other)
  Sender: FDA-Public Use
  Company Number: 2008SP008213

PATIENT
  Age: 28 Year
  Sex: Male

DRUGS (2)
  1. PEG-INTRON [Suspect]
     Indication: HEPATITIS C
     Dates: start: 20080226
  2. RIBAVIRIN [Suspect]
     Indication: HEPATITIS C
     Dosage: PO
     Route: 048
     Dates: start: 20080226

REACTIONS (5)
  - DEHYDRATION [None]
  - HAEMATEMESIS [None]
  - NAUSEA [None]
  - OESOPHAGEAL RUPTURE [None]
  - WHITE BLOOD CELL COUNT DECREASED [None]
